FAERS Safety Report 12323053 (Version 2)
Quarter: 2016Q3

REPORT INFORMATION
  Report Type: Spontaneous
  Country: US (occurrence: US)
  Receive Date: 20160502
  Receipt Date: 20160927
  Transmission Date: 20161109
  Serious: Yes (Other)
  Sender: FDA-Public Use
  Company Number: US-JNJFOC-20160401149

PATIENT
  Age: 55 Year
  Sex: Male
  Weight: 107.5 kg

DRUGS (2)
  1. METFORMIN [Suspect]
     Active Substance: METFORMIN HYDROCHLORIDE
     Indication: PRODUCT USED FOR UNKNOWN INDICATION
     Route: 048
  2. INVOKANA [Suspect]
     Active Substance: CANAGLIFLOZIN
     Indication: DIABETES MELLITUS
     Route: 048
     Dates: start: 201501, end: 201502

REACTIONS (7)
  - Cerebrovascular accident [Unknown]
  - Diabetic ketoacidosis [Unknown]
  - Hypotension [Unknown]
  - Diabetes mellitus inadequate control [Unknown]
  - Myocardial infarction [Unknown]
  - Renal disorder [Unknown]
  - Hypovolaemia [Unknown]

NARRATIVE: CASE EVENT DATE: 201502
